FAERS Safety Report 10458057 (Version 1)
Quarter: 2014Q3

REPORT INFORMATION
  Report Type: Spontaneous
  Country: JP (occurrence: JP)
  Receive Date: 20140917
  Receipt Date: 20140917
  Transmission Date: 20150326
  Serious: Yes (Other)
  Sender: FDA-Public Use
  Company Number: JP-ROCHE-1462455

PATIENT
  Age: 63 Year
  Sex: Male

DRUGS (3)
  1. XELODA [Suspect]
     Active Substance: CAPECITABINE
     Indication: COLON CANCER
     Dosage: DOSAGE WAS UNCERTAIN
     Route: 048
     Dates: end: 20110708
  2. ELPLAT [Concomitant]
     Active Substance: OXALIPLATIN
     Indication: COLON CANCER
     Dosage: UNCERTAIN DOSAGE AND 1 ONCE ADMINISTRATION
     Route: 041
     Dates: start: 20110708
  3. AVASTIN [Suspect]
     Active Substance: BEVACIZUMAB
     Indication: COLON CANCER
     Dosage: DOSAGE WAS UNCERTAIN, MOST RECENT DOSE RECEIVED ON 08/JUL/2011
     Route: 041
     Dates: start: 20110708

REACTIONS (1)
  - Gastrointestinal perforation [Unknown]
